FAERS Safety Report 13028821 (Version 1)
Quarter: 2016Q4

REPORT INFORMATION
  Report Type: Spontaneous
  Country: JP (occurrence: JP)
  Receive Date: 20161214
  Receipt Date: 20161214
  Transmission Date: 20170207
  Serious: Yes (Other)
  Sender: FDA-Public Use
  Company Number: JP-ABBVIE-16P-087-1810275-00

PATIENT
  Age: 53 Year
  Sex: Female

DRUGS (1)
  1. LEUPLIN [Suspect]
     Active Substance: LEUPROLIDE ACETATE
     Indication: UTERINE LEIOMYOMA
     Dosage: UNK
     Route: 058
     Dates: start: 2014, end: 2014

REACTIONS (4)
  - Asthenia [Unknown]
  - Anaemia [Unknown]
  - Hypoaesthesia [Unknown]
  - Pituitary haemorrhage [Unknown]

NARRATIVE: CASE EVENT DATE: 2014
